FAERS Safety Report 25082241 (Version 1)
Quarter: 2025Q1

REPORT INFORMATION
  Report Type: Spontaneous
  Country: CA (occurrence: CA)
  Receive Date: 20250317
  Receipt Date: 20250317
  Transmission Date: 20250409
  Serious: Yes (Death, Life-Threatening, Hospitalization, Disabling, Other)
  Sender: TEVA
  Company Number: CA-TEVA-VS-3310314

PATIENT
  Age: 50 Year
  Sex: Female

DRUGS (5)
  1. QUETIAPINE FUMARATE [Suspect]
     Active Substance: QUETIAPINE FUMARATE
     Indication: Product used for unknown indication
     Route: 065
  2. QUETIAPINE FUMARATE [Suspect]
     Active Substance: QUETIAPINE FUMARATE
     Indication: Product used for unknown indication
     Route: 065
  3. QUETIAPINE FUMARATE [Suspect]
     Active Substance: QUETIAPINE FUMARATE
     Indication: Product used for unknown indication
     Route: 065
  4. QUETIAPINE FUMARATE [Suspect]
     Active Substance: QUETIAPINE FUMARATE
     Indication: Product used for unknown indication
     Route: 042
  5. RAMIPRIL [Suspect]
     Active Substance: RAMIPRIL
     Indication: Product used for unknown indication
     Route: 065

REACTIONS (52)
  - Pericarditis [Fatal]
  - Osteoarthritis [Fatal]
  - Sciatica [Fatal]
  - Treatment failure [Fatal]
  - Off label use [Fatal]
  - Urticaria [Fatal]
  - Musculoskeletal stiffness [Fatal]
  - Maternal exposure during pregnancy [Fatal]
  - Product use issue [Fatal]
  - Lower limb fracture [Fatal]
  - Lung disorder [Fatal]
  - Pemphigus [Fatal]
  - Rheumatoid factor positive [Fatal]
  - Oedema [Fatal]
  - Night sweats [Fatal]
  - Swollen joint count [Fatal]
  - Therapy non-responder [Fatal]
  - Type 2 diabetes mellitus [Fatal]
  - Rheumatoid arthritis [Fatal]
  - Nasopharyngitis [Fatal]
  - Swelling [Fatal]
  - Obesity [Fatal]
  - Malaise [Fatal]
  - Vomiting [Fatal]
  - Weight increased [Fatal]
  - Rheumatic fever [Fatal]
  - Stomatitis [Fatal]
  - Systemic lupus erythematosus [Fatal]
  - Paraesthesia [Fatal]
  - Wheezing [Fatal]
  - Peripheral swelling [Fatal]
  - Sleep disorder due to general medical condition, hypersomnia type [Fatal]
  - Muscle injury [Fatal]
  - Musculoskeletal pain [Fatal]
  - Prescribed overdose [Fatal]
  - Psoriatic arthropathy [Fatal]
  - Sinusitis [Fatal]
  - Muscle spasms [Fatal]
  - Mobility decreased [Fatal]
  - Pruritus [Fatal]
  - Pyrexia [Fatal]
  - Lower respiratory tract infection [Fatal]
  - Swollen joint count increased [Fatal]
  - Wound [Fatal]
  - Therapeutic product effect decreased [Fatal]
  - Rash [Fatal]
  - Peripheral venous disease [Fatal]
  - Pain [Fatal]
  - Pregnancy [Fatal]
  - Road traffic accident [Fatal]
  - Product use in unapproved indication [Fatal]
  - Tender joint count [Fatal]
